FAERS Safety Report 7309192-8 (Version None)
Quarter: 2011Q1

REPORT INFORMATION
  Report Type: 
  Country: None (occurrence: None)
  Receive Date: 20110223
  Receipt Date: 20110209
  Transmission Date: 20110831
  Serious: Yes (Hospitalization)
  Sender: FDA-Public Use
  Company Number: US-BAYER-2010-003056

PATIENT
  Sex: Female
  Weight: 59 kg

DRUGS (5)
  1. YAZ [Suspect]
     Indication: CONTRACEPTION
     Dosage: UNK UNK, QD
  2. LUPRON [Concomitant]
     Indication: ENDOMETRIOSIS
     Dosage: 3.75 MG, Q1MON
     Route: 030
     Dates: start: 20090107
  3. TOPAMAX [Concomitant]
  4. ANTIBIOTICS [Suspect]
  5. NSAID'S [Concomitant]

REACTIONS (2)
  - ABDOMINAL PAIN [None]
  - CHOLECYSTECTOMY [None]
